FAERS Safety Report 14343587 (Version 1)
Quarter: 2018Q1

REPORT INFORMATION
  Report Type: Spontaneous
  Country: US (occurrence: US)
  Receive Date: 20180102
  Receipt Date: 20180102
  Transmission Date: 20180509
  Serious: Yes (Other)
  Sender: FDA-Public Use
  Company Number: US-PFIZER INC-2017553675

PATIENT
  Age: 86 Year
  Sex: Female

DRUGS (2)
  1. ADVIL [Suspect]
     Active Substance: IBUPROFEN
     Indication: NERVE COMPRESSION
     Dosage: TAKES 2 AT A TIME 7 TO 8 HOURS APART, AT TIMES TAKES THEM IN MORNING, EVENING AND BEFORE BED
     Route: 048
     Dates: start: 2015, end: 201712
  2. ADVIL [Suspect]
     Active Substance: IBUPROFEN
     Indication: INTERVERTEBRAL DISC DISORDER

REACTIONS (3)
  - Haemorrhage [Unknown]
  - Intentional product misuse [Unknown]
  - Intentional product use issue [Unknown]
